FAERS Safety Report 4491940-6 (Version None)
Quarter: 2004Q4

REPORT INFORMATION
  Report Type: 
  Country: None (occurrence: None)
  Receive Date: 20041029
  Receipt Date: 20041029
  Transmission Date: 20050328
  Serious: Yes (Death, Hospitalization, Other)
  Sender: FDA-Public Use
  Company Number: None

PATIENT
  Sex: Female
  Weight: 90.7194 kg

DRUGS (2)
  1. GEMZAR [Suspect]
     Indication: BREAST CANCER
     Dates: start: 20040715
  2. GEMZAR [Suspect]
     Indication: METASTASES TO CHEST WALL
     Dates: start: 20040715

REACTIONS (10)
  - BLOOD CREATININE INCREASED [None]
  - BLOOD UREA INCREASED [None]
  - DIALYSIS [None]
  - EMBOLISM [None]
  - FLUSHING [None]
  - INFECTION [None]
  - OBSTRUCTION [None]
  - PYREXIA [None]
  - RASH ERYTHEMATOUS [None]
  - RENAL TUBULAR NECROSIS [None]
